FAERS Safety Report 7804161-3 (Version None)
Quarter: 2011Q4

REPORT INFORMATION
  Report Type: 
  Country: None (occurrence: None)
  Receive Date: 20111010
  Receipt Date: 20110926
  Transmission Date: 20120403
  Serious: Yes (Death)
  Sender: FDA-Public Use
  Company Number: JP-VALEANT-2011VX002943

PATIENT
  Age: 87 Year
  Sex: Male

DRUGS (5)
  1. TIMOLOL MALEATE [Suspect]
     Indication: GLAUCOMA
     Route: 047
     Dates: start: 20081210
  2. DORZOLAMIDE HYDROCHLORIDE [Suspect]
     Indication: OCULAR HYPERTENSION
     Route: 047
     Dates: start: 20081217
  3. TIMOLOL MALEATE [Suspect]
     Indication: HYPERTONIA
     Route: 047
     Dates: start: 20081210
  4. DORZOLAMIDE HYDROCHLORIDE [Suspect]
     Indication: GLAUCOMA
     Route: 047
     Dates: start: 20081217
  5. TAFLUPROST [Concomitant]
     Route: 065

REACTIONS (1)
  - OESOPHAGEAL CARCINOMA [None]
